FAERS Safety Report 8824437 (Version 1)
Quarter: 2012Q4

REPORT INFORMATION
  Report Type: 
  Country: US (occurrence: US)
  Receive Date: 20121004
  Receipt Date: 20121004
  Transmission Date: 20130627
  Serious: Yes (Hospitalization)
  Sender: FDA-Public Use
  Company Number: US-BAYER-2012-101495

PATIENT
  Sex: Female

DRUGS (6)
  1. YAZ [Suspect]
     Indication: ORAL CONTRACEPTION
  2. YASMIN [Suspect]
  3. ADVIL [Concomitant]
  4. TUMS [CALCIUM CARBONATE] [Concomitant]
  5. TYLENOL [Concomitant]
  6. MULTIVITAMIN [Concomitant]

REACTIONS (1)
  - Pulmonary embolism [None]
